FAERS Safety Report 17980907 (Version 1)
Quarter: 2020Q3

REPORT INFORMATION
  Report Type: Spontaneous
  Country: MY (occurrence: MY)
  Receive Date: 20200704
  Receipt Date: 20200704
  Transmission Date: 20201103
  Serious: Yes (Other)
  Sender: FDA-Public Use
  Company Number: MY-AMGEN-MYSSP2020106479

PATIENT

DRUGS (1)
  1. PASURTA [Suspect]
     Active Substance: ERENUMAB
     Indication: PRODUCT USED FOR UNKNOWN INDICATION
     Dosage: UNK
     Route: 065

REACTIONS (3)
  - Encephalitis [Unknown]
  - Dyskinesia [Unknown]
  - Pituitary enlargement [Unknown]
